FAERS Safety Report 8557661-5 (Version None)
Quarter: 2012Q3

REPORT INFORMATION
  Report Type: 
  Country: None (occurrence: None)
  Receive Date: 20120801
  Receipt Date: 20120718
  Transmission Date: 20120928
  Serious: Yes (Hospitalization)
  Sender: FDA-Public Use
  Company Number: US-ELI_LILLY_AND_COMPANY-US201207006086

PATIENT
  Age: 30 Year
  Sex: Male

DRUGS (5)
  1. XANAX [Concomitant]
  2. CYMBALTA [Suspect]
     Indication: DEPRESSION
     Dosage: 160 MG, UNK
  3. DEPAKOTE [Concomitant]
  4. LITHIUM CARBONATE [Concomitant]
  5. RISPERDAL [Concomitant]

REACTIONS (2)
  - MENTAL DISORDER [None]
  - OVERDOSE [None]
